FAERS Safety Report 14464856 (Version 3)
Quarter: 2019Q1

REPORT INFORMATION
  Report Type: Report from Study
  Country: None (occurrence: BR)
  Receive Date: 20180130
  Receipt Date: 20190326
  Transmission Date: 20190417
  Serious: Yes (Other)
  Sender: FDA-Public Use
  Company Number: BR-ABBVIE-17K-020-1990764-00

PATIENT
  Age: 60 Year
  Sex: Female
  Weight: 65 kg

DRUGS (9)
  1. HUMIRA [Suspect]
     Active Substance: ADALIMUMAB
     Indication: CROHN^S DISEASE
     Dosage: WEEK 0 LOADING DOSE
     Route: 058
     Dates: start: 20140201, end: 20140201
  2. CITALOPRAM [Concomitant]
     Active Substance: CITALOPRAM HYDROBROMIDE
     Indication: DEPRESSION
  3. HUMIRA [Suspect]
     Active Substance: ADALIMUMAB
     Dosage: MAINTENANCE DOSE
     Route: 058
     Dates: start: 20170430, end: 20180101
  4. IMURAN [Concomitant]
     Active Substance: AZATHIOPRINE
     Indication: CROHN^S DISEASE
  5. PANTOPRAZOLE [Concomitant]
     Active Substance: PANTOPRAZOLE
     Indication: PROPHYLAXIS
  6. HUMIRA [Suspect]
     Active Substance: ADALIMUMAB
     Dosage: WEEK 02 LOADING DOSE
     Route: 058
     Dates: start: 201402, end: 201402
  7. RECONTER [Concomitant]
     Active Substance: ESCITALOPRAM OXALATE
     Indication: ANXIETY
  8. RIVOTRIL [Concomitant]
     Active Substance: CLONAZEPAM
     Indication: ANXIETY
  9. RECONTER [Concomitant]
     Active Substance: ESCITALOPRAM OXALATE
     Indication: HEADACHE

REACTIONS (24)
  - Pulpitis dental [Unknown]
  - Tooth abscess [Unknown]
  - Procedural headache [Recovered/Resolved]
  - Arthritis [Recovering/Resolving]
  - Urinary tract infection [Recovered/Resolved]
  - Neck pain [Recovered/Resolved]
  - Arthralgia [Recovering/Resolving]
  - Chills [Recovering/Resolving]
  - Headache [Recovering/Resolving]
  - Joint swelling [Recovered/Resolved]
  - Hypoaesthesia [Recovered/Resolved]
  - Hordeolum [Recovered/Resolved]
  - Postoperative abscess [Recovered/Resolved]
  - Post procedural infection [Recovered/Resolved]
  - Gingivitis [Recovered/Resolved]
  - Pathogen resistance [Unknown]
  - Sinus disorder [Unknown]
  - Arthralgia [Recovering/Resolving]
  - Crohn^s disease [Recovered/Resolved]
  - Viral infection [Unknown]
  - Inflammation [Unknown]
  - Nuclear magnetic resonance imaging brain abnormal [Unknown]
  - Pyrexia [Recovering/Resolving]
  - Spondylitis [Recovered/Resolved]

NARRATIVE: CASE EVENT DATE: 2014
